FAERS Safety Report 5747239-0 (Version None)
Quarter: 2008Q2

REPORT INFORMATION
  Report Type: 
  Country: None (occurrence: None)
  Receive Date: 20080520
  Receipt Date: 20080501
  Transmission Date: 20081010
  Serious: Yes (Hospitalization)
  Sender: FDA-Public Use
  Company Number: 2008PL000070

PATIENT
  Age: 60 Year
  Sex: Male

DRUGS (1)
  1. AZATHIOPRINE [Suspect]
     Indication: DERMATITIS CONTACT
     Dosage: 50 MG; QD; PO, 100 MG; PO
     Route: 048

REACTIONS (12)
  - ABDOMINAL PAIN [None]
  - CHILLS [None]
  - DIARRHOEA [None]
  - HEART RATE INCREASED [None]
  - HYPERSENSITIVITY [None]
  - HYPOTENSION [None]
  - MALAISE [None]
  - NAUSEA [None]
  - PULSE ABNORMAL [None]
  - PYREXIA [None]
  - SHOCK [None]
  - VOMITING [None]
